FAERS Safety Report 20374348 (Version 1)
Quarter: 2022Q1

REPORT INFORMATION
  Report Type: Report from Study
  Country: US (occurrence: US)
  Receive Date: 20220125
  Receipt Date: 20220125
  Transmission Date: 20220424
  Serious: Yes (Death)
  Sender: FDA-Public Use
  Company Number: US-MYLANLABS-2022M1007309

PATIENT
  Sex: Female

DRUGS (2)
  1. PACLITAXEL [Suspect]
     Active Substance: PACLITAXEL
     Indication: Triple negative breast cancer
     Dosage: 80 MILLIGRAM/SQ. METER, CYCLE ON DAYS 1, 8, AND 15
     Route: 065
  2. REPARIXIN [Suspect]
     Active Substance: REPARIXIN
     Indication: Triple negative breast cancer
     Dosage: 1200 MILLIGRAM, CYCLE, THREE TIMES DAILY FROM DAY 1 TO 21 OF 28 DAY CYCLE
     Route: 048

REACTIONS (2)
  - Peritonitis [Fatal]
  - Intestinal perforation [Fatal]
